FAERS Safety Report 9361051 (Version 6)
Quarter: 2013Q3

REPORT INFORMATION
  Report Type: Report from Study
  Country: ES (occurrence: ES)
  Receive Date: 20130621
  Receipt Date: 20130928
  Transmission Date: 20140515
  Serious: Yes (Death)
  Sender: FDA-Public Use
  Company Number: ES-ROCHE-1238846

PATIENT
  Age: 72 Year
  Sex: Female

DRUGS (73)
  1. PERTUZUMAB [Suspect]
     Indication: BREAST CANCER
     Dosage: LAST DOSE PRIOR TO EVENT ONSET ADMINISTERED ON: 28/MAY/2013
     Route: 042
     Dates: start: 20130212, end: 20130212
  2. PERTUZUMAB [Suspect]
     Dosage: LAST DOSE PRIOR TO EVENT ONSET ADMINISTERED ON: 28/MAY/2013
     Route: 042
     Dates: end: 20130614
  3. TRASTUZUMAB [Suspect]
     Indication: BREAST CANCER
     Dosage: LAST DOSE PRIOR TO EVENT ONSET ADMINISTERED ON: 28/MAY/2013
     Route: 042
     Dates: start: 20130212, end: 20130212
  4. TRASTUZUMAB [Suspect]
     Dosage: LAST DOSE PRIOR TO EVENT ONSET ADMINISTERED ON: 28/MAY/2013
     Route: 042
     Dates: end: 20130614
  5. PACLITAXEL [Suspect]
     Indication: BREAST CANCER
     Dosage: LAST DOSE PRIOR TO EVENT ONSET ADMINISTERED ON: 11/JUN/2013
     Route: 042
     Dates: start: 20130212, end: 20130614
  6. ADIRO [Concomitant]
     Route: 065
     Dates: start: 20081031, end: 20130614
  7. OSSEOR [Concomitant]
     Route: 065
     Dates: start: 20120913
  8. AIRTAL [Concomitant]
     Route: 065
     Dates: start: 20130606
  9. MOXIFLOXACIN [Concomitant]
     Route: 065
     Dates: start: 20130606, end: 20130613
  10. ORFIDAL [Concomitant]
     Route: 065
     Dates: start: 20100222, end: 20130614
  11. CYMBALTA [Concomitant]
     Route: 065
     Dates: start: 20111114, end: 20130614
  12. PANTOPRAZOLE [Concomitant]
     Route: 065
     Dates: start: 20080110, end: 20130614
  13. DEXAMETHASONE [Concomitant]
     Indication: PREMEDICATION
     Route: 065
     Dates: start: 20130212, end: 20130212
  14. DEXAMETHASONE [Concomitant]
     Route: 065
     Dates: start: 20130219, end: 20130219
  15. DEXAMETHASONE [Concomitant]
     Route: 065
     Dates: start: 20130226, end: 20130226
  16. DEXAMETHASONE [Concomitant]
     Route: 065
     Dates: start: 20130305, end: 20130305
  17. DEXAMETHASONE [Concomitant]
     Route: 065
     Dates: start: 20130312, end: 20130312
  18. DEXAMETHASONE [Concomitant]
     Route: 065
     Dates: start: 20130319, end: 20130319
  19. DEXAMETHASONE [Concomitant]
     Route: 065
     Dates: start: 20130326, end: 20130326
  20. DEXAMETHASONE [Concomitant]
     Route: 065
     Dates: start: 20130409, end: 20130409
  21. DEXAMETHASONE [Concomitant]
     Route: 065
     Dates: start: 20130416, end: 20130416
  22. DEXAMETHASONE [Concomitant]
     Route: 065
     Dates: start: 20130423, end: 20130423
  23. DEXAMETHASONE [Concomitant]
     Route: 065
     Dates: start: 20130507, end: 20130507
  24. DEXAMETHASONE [Concomitant]
     Route: 065
     Dates: start: 20130514, end: 20130514
  25. DEXAMETHASONE [Concomitant]
     Route: 065
     Dates: start: 20130521, end: 20130521
  26. DEXAMETHASONE [Concomitant]
     Route: 065
     Dates: start: 20130528, end: 20130528
  27. DEXAMETHASONE [Concomitant]
     Route: 065
     Dates: start: 20130402, end: 20130402
  28. DEXAMETHASONE [Concomitant]
     Route: 065
     Dates: start: 20130604, end: 20130604
  29. DEXAMETHASONE [Concomitant]
     Route: 065
     Dates: start: 20130611, end: 20130611
  30. DEXCHLORPHENIRAMINE [Concomitant]
     Indication: PREMEDICATION
     Route: 065
     Dates: start: 20130212, end: 20130212
  31. DEXCHLORPHENIRAMINE [Concomitant]
     Route: 065
     Dates: start: 20130219, end: 20130219
  32. DEXCHLORPHENIRAMINE [Concomitant]
     Route: 065
     Dates: start: 20130226, end: 20130226
  33. DEXCHLORPHENIRAMINE [Concomitant]
     Route: 065
     Dates: start: 20130305, end: 20130305
  34. DEXCHLORPHENIRAMINE [Concomitant]
     Route: 065
     Dates: start: 20130319, end: 20130319
  35. DEXCHLORPHENIRAMINE [Concomitant]
     Route: 065
     Dates: start: 20130326, end: 20130326
  36. DEXCHLORPHENIRAMINE [Concomitant]
     Route: 065
     Dates: start: 20130409, end: 20130409
  37. DEXCHLORPHENIRAMINE [Concomitant]
     Route: 065
     Dates: start: 20130416, end: 20130416
  38. DEXCHLORPHENIRAMINE [Concomitant]
     Route: 065
     Dates: start: 20130423, end: 20130423
  39. DEXCHLORPHENIRAMINE [Concomitant]
     Route: 065
     Dates: start: 20130507, end: 20130507
  40. DEXCHLORPHENIRAMINE [Concomitant]
     Route: 065
     Dates: start: 20130514, end: 20130514
  41. DEXCHLORPHENIRAMINE [Concomitant]
     Route: 065
     Dates: start: 20130521, end: 20130521
  42. DEXCHLORPHENIRAMINE [Concomitant]
     Route: 065
     Dates: start: 20130402, end: 20130402
  43. DEXCHLORPHENIRAMINE [Concomitant]
     Route: 065
     Dates: start: 20130528, end: 20130528
  44. DEXCHLORPHENIRAMINE [Concomitant]
     Route: 065
     Dates: start: 20130604, end: 20130604
  45. DEXCHLORPHENIRAMINE [Concomitant]
     Route: 065
     Dates: start: 20130611, end: 20130611
  46. RANITIDINE [Concomitant]
     Indication: PREMEDICATION
     Route: 065
     Dates: start: 20130212, end: 20130212
  47. RANITIDINE [Concomitant]
     Route: 065
     Dates: start: 20130219, end: 20130219
  48. RANITIDINE [Concomitant]
     Route: 065
     Dates: start: 20130226, end: 20130226
  49. RANITIDINE [Concomitant]
     Route: 065
     Dates: start: 20130305, end: 20130305
  50. RANITIDINE [Concomitant]
     Route: 065
     Dates: start: 20130312, end: 20130312
  51. RANITIDINE [Concomitant]
     Route: 065
     Dates: start: 20130319, end: 20130319
  52. RANITIDINE [Concomitant]
     Route: 065
     Dates: start: 20130326, end: 20130326
  53. RANITIDINE [Concomitant]
     Route: 065
     Dates: start: 20130409, end: 20130409
  54. RANITIDINE [Concomitant]
     Route: 065
     Dates: start: 20130416, end: 20130416
  55. RANITIDINE [Concomitant]
     Route: 065
     Dates: start: 20130423, end: 20130423
  56. RANITIDINE [Concomitant]
     Route: 065
     Dates: start: 20130507, end: 20130507
  57. RANITIDINE [Concomitant]
     Route: 065
     Dates: start: 20130514, end: 20130514
  58. RANITIDINE [Concomitant]
     Route: 065
     Dates: start: 20130521, end: 20130521
  59. RANITIDINE [Concomitant]
     Route: 065
     Dates: start: 20130402, end: 20130402
  60. RANITIDINE [Concomitant]
     Route: 065
     Dates: start: 20130528, end: 20130528
  61. RANITIDINE [Concomitant]
     Route: 065
     Dates: start: 20130604, end: 20130604
  62. RANITIDINE [Concomitant]
     Route: 065
     Dates: start: 20130611, end: 20130611
  63. FLUOCINOLONE ACETONIDE [Concomitant]
     Route: 065
     Dates: start: 20130319, end: 20130614
  64. PARACETAMOL [Concomitant]
     Route: 065
     Dates: start: 20130306, end: 20130319
  65. HYDROCORTISONE [Concomitant]
     Route: 061
     Dates: start: 20130312, end: 20130402
  66. LOPERAMIDE HYDROCHLORIDE [Concomitant]
     Route: 065
     Dates: start: 20130320, end: 20130507
  67. LOPERAMIDE HYDROCHLORIDE [Concomitant]
     Route: 065
     Dates: start: 20130519, end: 20130519
  68. LOPERAMIDE HYDROCHLORIDE [Concomitant]
     Route: 065
     Dates: start: 20130525, end: 20130527
  69. LOPERAMIDE HYDROCHLORIDE [Concomitant]
     Route: 065
     Dates: start: 20130604, end: 20130606
  70. IBUPROFEN [Concomitant]
     Route: 065
     Dates: start: 20130320, end: 20130416
  71. MOMETASONE [Concomitant]
     Route: 065
     Dates: start: 20130403, end: 20130611
  72. ZALDIAR [Concomitant]
     Dosage: 75/560MG DAILY
     Route: 065
     Dates: start: 20130514, end: 20130520
  73. ACECLOFENAC [Concomitant]
     Route: 065
     Dates: start: 20130521, end: 20130614

REACTIONS (1)
  - Death [Fatal]
